FAERS Safety Report 16347233 (Version 1)
Quarter: 2019Q2

REPORT INFORMATION
  Report Type: Spontaneous
  Country: JP (occurrence: JP)
  Receive Date: 20190523
  Receipt Date: 20190523
  Transmission Date: 20190711
  Serious: Yes (Hospitalization)
  Sender: FDA-Public Use
  Company Number: JP-ASTRAZENECA-2019SE72738

PATIENT
  Age: 54 Year
  Sex: Female

DRUGS (6)
  1. PRIMPERAN [Concomitant]
     Active Substance: METOCLOPRAMIDE HYDROCHLORIDE
  2. SOLDEM 3AG [Concomitant]
  3. GASMOTIN [Concomitant]
     Active Substance: MOSAPRIDE CITRATE
  4. AMLODIN [Concomitant]
     Active Substance: AMLODIPINE BESYLATE
  5. GLYCEOL [Concomitant]
     Active Substance: GLYCERIN
  6. NEXIUM [Suspect]
     Active Substance: ESOMEPRAZOLE MAGNESIUM
     Dosage: DOSE AND FREQUENCY UNKNOWN
     Route: 048

REACTIONS (2)
  - Brain neoplasm [Unknown]
  - Taste disorder [Recovering/Resolving]
